FAERS Safety Report 15220722 (Version 2)
Quarter: 2018Q4

REPORT INFORMATION
  Report Type: Spontaneous
  Country: US (occurrence: US)
  Receive Date: 20180731
  Receipt Date: 20181002
  Transmission Date: 20190204
  Serious: Yes (Other)
  Sender: FDA-Public Use
  Company Number: US-BAYER-2018-138399

PATIENT
  Sex: Female

DRUGS (1)
  1. MIRENA [Suspect]
     Active Substance: LEVONORGESTREL
     Indication: CONTRACEPTION
     Dosage: 20 MCG/24HR, CONT
     Route: 015
     Dates: start: 2005, end: 2005

REACTIONS (8)
  - Menometrorrhagia [None]
  - Precancerous cells present [Recovered/Resolved with Sequelae]
  - Device expulsion [Recovered/Resolved]
  - Abdominal pain lower [Recovered/Resolved]
  - Abdominal discomfort [Recovered/Resolved]
  - Adverse event [None]
  - Complication of device insertion [None]
  - Oligomenorrhoea [None]

NARRATIVE: CASE EVENT DATE: 2005
